FAERS Safety Report 11748401 (Version 1)
Quarter: 2015Q4

REPORT INFORMATION
  Report Type: Spontaneous
  Country: US (occurrence: US)
  Receive Date: 20151117
  Receipt Date: 20151117
  Transmission Date: 20160304
  Serious: Yes (Other)
  Sender: FDA-Public Use
  Company Number: US-BAXTER-2015BAX061383

PATIENT
  Age: 35 Year
  Sex: Male

DRUGS (5)
  1. SEVOFLURANE, USP [Suspect]
     Active Substance: SEVOFLURANE
     Indication: STATUS ASTHMATICUS
     Route: 055
  2. AMINOPHYLLINE. [Concomitant]
     Active Substance: AMINOPHYLLINE
     Indication: ADJUVANT THERAPY
     Route: 065
  3. MAGNESIUM SULFATE. [Concomitant]
     Active Substance: MAGNESIUM SULFATE
     Indication: ADJUVANT THERAPY
     Route: 065
  4. KETAMINE [Concomitant]
     Active Substance: KETAMINE
     Indication: ADJUVANT THERAPY
     Route: 065
  5. SEVOFLURANE, USP [Suspect]
     Active Substance: SEVOFLURANE
     Indication: OFF LABEL USE

REACTIONS (1)
  - Brain oedema [Recovered/Resolved]
